FAERS Safety Report 24859961 (Version 1)
Quarter: 2025Q1

REPORT INFORMATION
  Report Type: Report from Study
  Country: US (occurrence: US)
  Receive Date: 20250119
  Receipt Date: 20250119
  Transmission Date: 20250408
  Serious: No
  Sender: ACCORD
  Company Number: US-Accord-434339

PATIENT
  Age: 78 Year
  Sex: Female

DRUGS (1)
  1. CLOZAPINE [Suspect]
     Active Substance: CLOZAPINE
     Indication: Product used for unknown indication

REACTIONS (6)
  - Red blood cell count decreased [Unknown]
  - Haemoglobin decreased [Unknown]
  - Haematocrit decreased [Unknown]
  - Mean cell volume increased [Unknown]
  - Neutrophil percentage increased [Unknown]
  - Lymphocyte percentage decreased [Unknown]

NARRATIVE: CASE EVENT DATE: 20240702
